FAERS Safety Report 4528243-7 (Version None)
Quarter: 2004Q4

REPORT INFORMATION
  Report Type: 
  Country: None (occurrence: None)
  Receive Date: 20041130
  Receipt Date: 20040825
  Transmission Date: 20050328
  Serious: No
  Sender: FDA-Public Use
  Company Number: WAES 0403USA01541

PATIENT
  Sex: Male

DRUGS (3)
  1. ZETIA [Suspect]
     Indication: HYPERCHOLESTEROLAEMIA
     Dosage: 10 MG DAILY PO
     Route: 048
     Dates: start: 20040307
  2. PRINIVIL [Concomitant]
  3. ASPIRIN [Concomitant]

REACTIONS (2)
  - BLOOD POTASSIUM INCREASED [None]
  - BLOOD PRESSURE FLUCTUATION [None]
